FAERS Safety Report 7852128-1 (Version None)
Quarter: 2011Q4

REPORT INFORMATION
  Report Type: 
  Country: None (occurrence: None)
  Receive Date: 20111026
  Receipt Date: 20111026
  Transmission Date: 20120403
  Serious: Yes (Other)
  Sender: FDA-Public Use
  Company Number: JP-PFIZER INC-2011255967

PATIENT
  Age: 59 Year
  Sex: Female

DRUGS (2)
  1. ZOLOFT [Suspect]
     Dosage: 25 MG/DAY
     Route: 048
     Dates: start: 20111013
  2. LOSARTAN POTASSIUM [Concomitant]
     Dosage: UNK

REACTIONS (1)
  - JOINT DISLOCATION [None]
